FAERS Safety Report 6600660-0 (Version None)
Quarter: 2010Q1

REPORT INFORMATION
  Report Type: 
  Country: None (occurrence: None)
  Receive Date: 20100223
  Receipt Date: 20100223
  Transmission Date: 20100710
  Serious: Yes (Other)
  Sender: FDA-Public Use
  Company Number: None

PATIENT
  Age: 70 Year
  Sex: Female
  Weight: 63 kg

DRUGS (16)
  1. TIGECYCLINE [Suspect]
     Indication: CELLULITIS
     Dosage: 100 MG X 1 THEN 50 MG Q12H IV BOLUS
     Route: 040
     Dates: start: 20091225, end: 20100111
  2. RILUZOLE [Concomitant]
  3. PANTOPRAZOLE [Concomitant]
  4. OXYCODONE HCL EXTENDED-RELEASE [Concomitant]
  5. AMLODIPINE [Concomitant]
  6. CALCIUM WITH VITAMIN D [Concomitant]
  7. CHOLECALCIFEROL [Concomitant]
  8. CHOLESTYRAMINE [Concomitant]
  9. SANTYL [Concomitant]
  10. NYSTATIN [Concomitant]
  11. SENNA-S [Concomitant]
  12. ENOXAPARIN SODIUM [Concomitant]
  13. FERROUS SULFATE TAB [Concomitant]
  14. MULTI-VITAMIN [Concomitant]
  15. TOLTERODINE TARTRATE [Concomitant]
  16. VALSARTAN [Concomitant]

REACTIONS (4)
  - ALANINE AMINOTRANSFERASE INCREASED [None]
  - ASPARTATE AMINOTRANSFERASE INCREASED [None]
  - BLOOD ALKALINE PHOSPHATASE INCREASED [None]
  - POOR PERIPHERAL CIRCULATION [None]
